FAERS Safety Report 6801587-1 (Version None)
Quarter: 2010Q2

REPORT INFORMATION
  Report Type: 
  Country: None (occurrence: None)
  Receive Date: 20100629
  Receipt Date: 20100615
  Transmission Date: 20101027
  Serious: Yes (Other)
  Sender: FDA-Public Use
  Company Number: US-BAYER-200943408NA

PATIENT
  Age: 19 Year
  Sex: Female
  Weight: 66 kg

DRUGS (1)
  1. YAZ [Suspect]
     Indication: ACNE
     Route: 048
     Dates: start: 20070201, end: 20090701

REACTIONS (9)
  - ABDOMINAL DISTENSION [None]
  - CHOLECYSTITIS [None]
  - CHOLESTEROSIS [None]
  - CONSTIPATION [None]
  - DIARRHOEA [None]
  - DYSPEPSIA [None]
  - FLATULENCE [None]
  - LYMPHADENOPATHY [None]
  - SCAR [None]
